FAERS Safety Report 17339595 (Version 1)
Quarter: 2020Q1

REPORT INFORMATION
  Report Type: Spontaneous
  Country: US (occurrence: US)
  Receive Date: 20200129
  Receipt Date: 20200129
  Transmission Date: 20200409
  Serious: No
  Sender: FDA-Public Use
  Company Number: US-ALLERGAN-1904128US

PATIENT
  Age: 62 Year
  Sex: Female

DRUGS (11)
  1. BOTOX [Suspect]
     Active Substance: ONABOTULINUMTOXINA
     Dosage: 60 UNITS, SINGLE
     Route: 030
     Dates: start: 20190111, end: 20190111
  2. BOTOX [Suspect]
     Active Substance: ONABOTULINUMTOXINA
     Dosage: 20 UNITS, SINGLE
     Route: 030
     Dates: start: 20190111, end: 20190111
  3. BOTOX [Suspect]
     Active Substance: ONABOTULINUMTOXINA
     Dosage: 50 UNITS, SINGLE
     Route: 030
     Dates: start: 20190111, end: 20190111
  4. BOTOX [Suspect]
     Active Substance: ONABOTULINUMTOXINA
     Indication: TORTICOLLIS
     Dosage: 90 UNITS, SINGLE
     Route: 030
     Dates: start: 20190111, end: 20190111
  5. BOTOX [Suspect]
     Active Substance: ONABOTULINUMTOXINA
     Dosage: 20 UNITS, SINGLE
     Route: 030
     Dates: start: 20190111, end: 20190111
  6. BOTOX [Suspect]
     Active Substance: ONABOTULINUMTOXINA
     Dosage: 20 UNITS, SINGLE
     Route: 030
     Dates: start: 20190111, end: 20190111
  7. GINGER. [Concomitant]
     Active Substance: GINGER
     Indication: NUTRITIONAL SUPPLEMENTATION
     Dosage: UNK
     Route: 048
  8. VITAMINS NOS [Concomitant]
     Active Substance: VITAMINS
     Indication: NUTRITIONAL SUPPLEMENTATION
     Dosage: UNK
     Route: 048
  9. CLONAZEPAM. [Concomitant]
     Active Substance: CLONAZEPAM
     Indication: MUSCLE RELAXANT THERAPY
     Dosage: UNK
     Route: 048
  10. SALMON OIL [Concomitant]
     Active Substance: FISH OIL
     Indication: NUTRITIONAL SUPPLEMENTATION
     Dosage: UNK
     Route: 048
  11. FLAXSEED [Concomitant]
     Active Substance: FLAX SEED
     Indication: NUTRITIONAL SUPPLEMENTATION
     Dosage: UNK
     Route: 048

REACTIONS (12)
  - Productive cough [Not Recovered/Not Resolved]
  - Dysphagia [Not Recovered/Not Resolved]
  - Sleep apnoea syndrome [Not Recovered/Not Resolved]
  - Incorrect route of product administration [Unknown]
  - Insomnia [Unknown]
  - Suffocation feeling [Unknown]
  - Vocal cord paralysis [Unknown]
  - Ear discomfort [Not Recovered/Not Resolved]
  - Sinus disorder [Not Recovered/Not Resolved]
  - Vomiting [Not Recovered/Not Resolved]
  - Obstructive airways disorder [Unknown]
  - Dysphonia [Not Recovered/Not Resolved]

NARRATIVE: CASE EVENT DATE: 20190111
